FAERS Safety Report 14304072 (Version 1)
Quarter: 2017Q4

REPORT INFORMATION
  Report Type: Spontaneous
  Country: JP (occurrence: JP)
  Receive Date: 20171219
  Receipt Date: 20171219
  Transmission Date: 20180321
  Serious: Yes (Other)
  Sender: FDA-Public Use
  Company Number: JP-OTSUKA-JP-2011-10298

PATIENT
  Age: 31 Year
  Sex: Female
  Weight: 44.5 kg

DRUGS (21)
  1. ABILIFY [Suspect]
     Active Substance: ARIPIPRAZOLE
     Dosage: 3-24MG, DAILY DOSE
     Route: 048
     Dates: start: 20090710, end: 20110208
  2. QUETIAPINE FUMARATE. [Suspect]
     Active Substance: QUETIAPINE FUMARATE
     Dosage: 200-600MG, DAILY DOSE
     Route: 048
     Dates: start: 20110107
  3. RISPERIDONE. [Suspect]
     Active Substance: RISPERIDONE
     Indication: HALLUCINATION
     Dosage: 1-6MG, DAILY DOSE
     Route: 048
     Dates: start: 20071019, end: 20080422
  4. LEVOMEPROMAZINE MALEATE [Suspect]
     Active Substance: LEVOMEPROMAZINE MALEATE
     Dosage: 2.5 MG, QD
     Route: 048
     Dates: start: 20100723, end: 20101015
  5. BIPERIDEN HYDROCHLORIDE [Concomitant]
     Active Substance: BIPERIDEN HYDROCHLORIDE
     Indication: EXTRAPYRAMIDAL DISORDER
     Dosage: 1-3MG, DAILY DOSE
     Route: 048
     Dates: start: 20070525, end: 20080616
  6. OLANZAPINE. [Suspect]
     Active Substance: OLANZAPINE
     Indication: HALLUCINATION
     Dosage: 5-10MG, DAILY DOSE
     Route: 048
     Dates: start: 20061218, end: 20070302
  7. MUCOSTA TABLETS 100MG [Concomitant]
     Active Substance: REBAMIPIDE
     Indication: PRODUCT USED FOR UNKNOWN INDICATION
     Dosage: 100 MG, BID
     Route: 048
     Dates: start: 20070727
  8. BIPERIDEN HYDROCHLORIDE [Concomitant]
     Active Substance: BIPERIDEN HYDROCHLORIDE
     Dosage: 1-3MG, DAILY DOSE
     Route: 048
     Dates: start: 20080825
  9. NITRAZEPAM [Concomitant]
     Active Substance: NITRAZEPAM
     Dosage: 5 MG, QD
     Route: 048
     Dates: start: 20080616, end: 20080725
  10. QUETIAPINE FUMARATE. [Suspect]
     Active Substance: QUETIAPINE FUMARATE
     Indication: DELUSION
     Dosage: 200-600MG, DAILY DOSE
     Route: 048
     Dates: start: 20080530, end: 20080822
  11. SULPIRIDE [Concomitant]
     Active Substance: SULPIRIDE
     Indication: DELUSION
  12. ABILIFY [Suspect]
     Active Substance: ARIPIPRAZOLE
     Indication: HALLUCINATION
     Dosage: 3-24MG, DAILY DOSE
     Route: 048
     Dates: start: 20070216, end: 20071130
  13. ABILIFY [Suspect]
     Active Substance: ARIPIPRAZOLE
     Indication: DELUSION
     Dosage: 3-24MG, DAILY DOSE
     Route: 048
     Dates: start: 20080422, end: 20080725
  14. QUETIAPINE FUMARATE. [Suspect]
     Active Substance: QUETIAPINE FUMARATE
     Indication: HALLUCINATION
     Dosage: 200-600MG, DAILY DOSE
     Route: 048
     Dates: start: 20060928, end: 20070105
  15. OLANZAPINE. [Suspect]
     Active Substance: OLANZAPINE
     Indication: DELUSION
     Dosage: 5-10MG, DAILY DOSE
     Route: 048
     Dates: start: 20080418, end: 20080422
  16. LEVOMEPROMAZINE MALEATE [Suspect]
     Active Substance: LEVOMEPROMAZINE MALEATE
     Indication: INSOMNIA
     Dosage: 2.5-5MG, DAILY DOSE
     Route: 048
     Dates: start: 20070413, end: 20080530
  17. FLUNITRAZEPAM [Concomitant]
     Active Substance: FLUNITRAZEPAM
     Indication: INSOMNIA
     Dosage: 1-2MG, DAILY DOSE
     Route: 048
     Dates: start: 20080822
  18. RISPERIDONE. [Suspect]
     Active Substance: RISPERIDONE
     Indication: DELUSION
     Dosage: 1-6MG, DAILY DOSE
     Route: 048
     Dates: start: 20080822, end: 20101203
  19. SULPIRIDE [Concomitant]
     Active Substance: SULPIRIDE
     Indication: HALLUCINATION
     Dosage: 50 MG, BID
     Route: 048
     Dates: start: 20070523, end: 20070727
  20. NITRAZEPAM [Concomitant]
     Active Substance: NITRAZEPAM
     Indication: INSOMNIA
     Dosage: 5 MG, QD
     Route: 048
     Dates: start: 20070727, end: 20080530
  21. LEVOMEPROMAZINE MALEATE [Suspect]
     Active Substance: LEVOMEPROMAZINE MALEATE
     Dosage: 2.5-5MG, DAILY DOSE
     Route: 048
     Dates: start: 20080822, end: 20090602

REACTIONS (5)
  - Dyskinesia [Recovering/Resolving]
  - Akathisia [Recovered/Resolved]
  - Blepharospasm [Not Recovered/Not Resolved]
  - Bronchospasm [Recovered/Resolved]
  - Photophobia [Not Recovered/Not Resolved]

NARRATIVE: CASE EVENT DATE: 20070727
